FAERS Safety Report 6036429-8 (Version None)
Quarter: 2009Q1

REPORT INFORMATION
  Report Type: 
  Country: None (occurrence: None)
  Receive Date: 20090112
  Receipt Date: 20081229
  Transmission Date: 20090719
  Serious: Yes (Hospitalization)
  Sender: FDA-Public Use
  Company Number: 110310

PATIENT
  Age: 16 Year
  Sex: Male

DRUGS (1)
  1. IBUPROFEN TABLET BROWN USP/ 200 MG [Suspect]
     Indication: MUSCULOSKELETAL PAIN
     Dosage: 200-1200 MG/QD OVER 6 WEEKS, ORAL
     Route: 048

REACTIONS (5)
  - BLOOD COPPER INCREASED [None]
  - CHOLESTASIS [None]
  - INTERNATIONAL NORMALISED RATIO INCREASED [None]
  - LIVER INJURY [None]
  - SMOOTH MUSCLE ANTIBODY POSITIVE [None]
